FAERS Safety Report 14273818 (Version 3)
Quarter: 2018Q2

REPORT INFORMATION
  Report Type: Report from Study
  Country: CA (occurrence: CA)
  Receive Date: 20171211
  Receipt Date: 20180531
  Transmission Date: 20180711
  Serious: Yes (Other)
  Sender: FDA-Public Use
  Company Number: CA-BRISTOL-MYERS SQUIBB COMPANY-BMS-2017-058306

PATIENT
  Age: 81 Year
  Sex: Female

DRUGS (1)
  1. ABATACEPT [Suspect]
     Active Substance: ABATACEPT
     Indication: RHEUMATOID ARTHRITIS
     Dosage: 750 MG, Q4WK
     Route: 042

REACTIONS (5)
  - Rheumatoid arthritis [Recovering/Resolving]
  - Malaise [Unknown]
  - Urinary tract infection [Recovered/Resolved with Sequelae]
  - Fatigue [Unknown]
  - Cataract [Unknown]

NARRATIVE: CASE EVENT DATE: 20170618
